FAERS Safety Report 5519427-X (Version None)
Quarter: 2007Q4

REPORT INFORMATION
  Report Type: 
  Country: None (occurrence: None)
  Receive Date: 20071116
  Receipt Date: 20071107
  Transmission Date: 20080405
  Serious: Yes (Other)
  Sender: FDA-Public Use
  Company Number: GB-AMGEN-UK248793

PATIENT
  Sex: Female
  Weight: 77.9 kg

DRUGS (5)
  1. NEULASTA [Suspect]
     Indication: CHEMOTHERAPY
     Route: 058
     Dates: start: 20070921
  2. TAXOTERE [Suspect]
     Dates: start: 20070819
  3. FLUOROURACIL [Concomitant]
  4. EPIRUBICIN [Concomitant]
  5. CYCLOPHOSPHAMIDE [Concomitant]

REACTIONS (7)
  - ABDOMINAL PAIN [None]
  - BACK PAIN [None]
  - DIARRHOEA [None]
  - MALAISE [None]
  - PAIN [None]
  - PAIN IN EXTREMITY [None]
  - STOMATITIS [None]
